FAERS Safety Report 4724779-4 (Version None)
Quarter: 2005Q3

REPORT INFORMATION
  Report Type: 
  Country: None (occurrence: None)
  Receive Date: 20050726
  Receipt Date: 20050721
  Transmission Date: 20060218
  Serious: Yes (Other)
  Sender: FDA-Public Use
  Company Number: ES-GLAXOSMITHKLINE-B0388621A

PATIENT
  Age: 28 Year
  Sex: Female
  Weight: 51 kg

DRUGS (1)
  1. ZYNTABAC [Suspect]
     Dosage: 300MG TWICE PER DAY
     Route: 048
     Dates: start: 20050605, end: 20050608

REACTIONS (3)
  - CONDITION AGGRAVATED [None]
  - MYOPIA [None]
  - VISION BLURRED [None]
